FAERS Safety Report 23691536 (Version 1)
Quarter: 2024Q2

REPORT INFORMATION
  Report Type: Spontaneous
  Country: US (occurrence: US)
  Receive Date: 20240401
  Receipt Date: 20240401
  Transmission Date: 20240716
  Serious: Yes (Other)
  Sender: FDA-Public Use
  Company Number: US-STRIDES ARCOLAB LIMITED-2023SP010871

PATIENT
  Age: 71 Year
  Sex: Female

DRUGS (4)
  1. TRIAMCINOLONE ACETONIDE [Suspect]
     Active Substance: TRIAMCINOLONE ACETONIDE
     Indication: Skin hyperpigmentation
     Dosage: UNK, CREAM
     Route: 061
  2. BETAMETHASONE DIPROPIONATE [Suspect]
     Active Substance: BETAMETHASONE DIPROPIONATE
     Indication: Skin hyperpigmentation
     Dosage: UNK
     Route: 061
  3. TACROLIMUS [Suspect]
     Active Substance: TACROLIMUS
     Indication: Skin hyperpigmentation
     Dosage: UNK, OINTMENT
     Route: 061
  4. HYDROXYCHLOROQUINE [Concomitant]
     Active Substance: HYDROXYCHLOROQUINE
     Indication: Malaria prophylaxis
     Dosage: 200 MILLIGRAM, BID
     Route: 048

REACTIONS (1)
  - Treatment failure [Unknown]
